FAERS Safety Report 4443561-9 (Version None)
Quarter: 2004Q3

REPORT INFORMATION
  Report Type: 
  Country: None (occurrence: None)
  Receive Date: 20040908
  Receipt Date: 20040831
  Transmission Date: 20050211
  Serious: Yes (Hospitalization)
  Sender: FDA-Public Use
  Company Number: DE-MERCK-0409DEU00009

PATIENT
  Age: 68 Year
  Sex: Male

DRUGS (1)
  1. PROSCAR [Suspect]
     Indication: BENIGN PROSTATIC HYPERPLASIA
     Route: 048
     Dates: start: 20020101

REACTIONS (4)
  - BENIGN BREAST NEOPLASM [None]
  - BREAST PAIN [None]
  - FIBROCYSTIC BREAST DISEASE [None]
  - GYNAECOMASTIA [None]
